FAERS Safety Report 9494251 (Version 1)
Quarter: 2013Q3

REPORT INFORMATION
  Report Type: Spontaneous
  Country: US (occurrence: None)
  Receive Date: 20130828
  Receipt Date: 20130828
  Transmission Date: 20140515
  Serious: Yes (Hospitalization)
  Sender: FDA-Public Use
  Company Number: CC400190669

PATIENT
  Age: 68 Year
  Sex: Male

DRUGS (1)
  1. HEPARIN SODIUM IN DEXTROSE [Suspect]
     Indication: THROMBOSIS PROPHYLAXIS
     Route: 058

REACTIONS (6)
  - Heparin-induced thrombocytopenia [None]
  - Jugular vein thrombosis [None]
  - Cerebral haemorrhage [None]
  - Diabetes mellitus inadequate control [None]
  - White blood cell count increased [None]
  - Heparin-induced thrombocytopenia [None]
